FAERS Safety Report 8817087 (Version 1)
Quarter: 2012Q4

REPORT INFORMATION
  Report Type: Spontaneous
  Country: US (occurrence: None)
  Receive Date: 20121003
  Receipt Date: 20121003
  Transmission Date: 20130627
  Serious: Yes (Life-Threatening)
  Sender: FDA-Public Use
  Company Number: None

PATIENT
  Age: 53 Year
  Sex: Female
  Weight: 49.9 kg

DRUGS (1)
  1. BOTOX [Suspect]
     Indication: SKIN COSMETIC PROCEDURE
     Dates: start: 20120910, end: 20120912

REACTIONS (16)
  - Dysphagia [None]
  - Urticaria [None]
  - Muscle spasms [None]
  - Neuralgia [None]
  - Myalgia [None]
  - Dreamy state [None]
  - Musculoskeletal stiffness [None]
  - Asthenia [None]
  - Fatigue [None]
  - Influenza like illness [None]
  - Sinusitis [None]
  - Oropharyngeal pain [None]
  - Ear infection [None]
  - Bronchitis [None]
  - Anosmia [None]
  - Incorrect dose administered [None]
